FAERS Safety Report 6143114-0 (Version None)
Quarter: 2009Q2

REPORT INFORMATION
  Report Type: 
  Country: None (occurrence: None)
  Receive Date: 20090403
  Receipt Date: 20090327
  Transmission Date: 20091009
  Serious: Yes (Other)
  Sender: FDA-Public Use
  Company Number: BR-JNJFOC-20090104523

PATIENT
  Age: 32 Year
  Sex: Female
  Weight: 66 kg

DRUGS (3)
  1. MICRONOR [Suspect]
     Route: 048
  2. MICRONOR [Suspect]
     Route: 048
  3. MICRONOR [Suspect]
     Indication: CONTRACEPTION
     Route: 048

REACTIONS (4)
  - GALLBLADDER OPERATION [None]
  - NAUSEA [None]
  - OFF LABEL USE [None]
  - VAGINAL HAEMORRHAGE [None]
